FAERS Safety Report 5633604-9 (Version None)
Quarter: 2008Q1

REPORT INFORMATION
  Report Type: 
  Country: None (occurrence: None)
  Receive Date: 20080221
  Receipt Date: 20080213
  Transmission Date: 20080703
  Serious: Yes (Death, Other)
  Sender: FDA-Public Use
  Company Number: US-PFIZER INC-2008013824

PATIENT
  Sex: Female
  Weight: 59 kg

DRUGS (4)
  1. CELEBREX [Suspect]
     Indication: ARTHRALGIA
  2. CELEBREX [Suspect]
     Indication: PAIN
  3. BEXTRA [Suspect]
     Indication: ARTHRALGIA
  4. BEXTRA [Suspect]
     Indication: PAIN

REACTIONS (1)
  - MYOCARDIAL INFARCTION [None]
